FAERS Safety Report 9951375 (Version 1)
Quarter: 2014Q1

REPORT INFORMATION
  Report Type: Report from Study
  Country: US (occurrence: US)
  Receive Date: 20140304
  Receipt Date: 20140304
  Transmission Date: 20141002
  Serious: No
  Sender: FDA-Public Use
  Company Number: US-ABBVIE-13P-163-1070428-00

PATIENT
  Age: 33 Year
  Sex: Female

DRUGS (6)
  1. HUMIRA [Suspect]
     Indication: CROHN^S DISEASE
     Dates: start: 200612, end: 201203
  2. HUMIRA [Suspect]
     Indication: CROHN^S DISEASE
     Dates: start: 201203
  3. VITAMIN D [Concomitant]
     Indication: VITAMIN D DECREASED
  4. CALCIUM CITRATE/VIT D [Concomitant]
     Indication: OSTEOPENIA
     Dosage: 630 MG/500 IU
  5. FERROUS SULFATE [Concomitant]
     Indication: HAEMATOCRIT DECREASED
  6. B 12 [Concomitant]
     Indication: VITAMIN SUPPLEMENTATION
     Route: 050

REACTIONS (2)
  - Injection site haemorrhage [Recovered/Resolved]
  - Injection site mass [Recovered/Resolved]
